FAERS Safety Report 25824990 (Version 4)
Quarter: 2025Q3

REPORT INFORMATION
  Report Type: Spontaneous
  Country: US (occurrence: None)
  Receive Date: 20250919
  Receipt Date: 20250930
  Transmission Date: 20251020
  Serious: No
  Sender: ALKERMES
  Company Number: US-ALKERMES INC.-ALK-2025-002245

PATIENT

DRUGS (3)
  1. VIVITROL [Suspect]
     Active Substance: NALTREXONE
     Indication: Product used for unknown indication
     Dates: start: 20250825, end: 20250825
  2. VIVITROL [Suspect]
     Active Substance: NALTREXONE
     Dates: start: 20250821, end: 20250821
  3. VIVITROL [Suspect]
     Active Substance: NALTREXONE
     Dates: start: 20250820, end: 20250820

REACTIONS (4)
  - Needle issue [Recovered/Resolved]
  - Product reconstitution quality issue [Recovered/Resolved]
  - Product physical issue [Recovered/Resolved]
  - Wrong technique in product usage process [Recovered/Resolved]

NARRATIVE: CASE EVENT DATE: 20250801
